FAERS Safety Report 10722336 (Version 2)
Quarter: 2015Q1

REPORT INFORMATION
  Report Type: Report from Study
  Country: DE (occurrence: DE)
  Receive Date: 20150119
  Receipt Date: 20150217
  Transmission Date: 20150721
  Serious: Yes (Hospitalization, Other)
  Sender: FDA-Public Use
  Company Number: DE-GILEAD-2015-0131906

PATIENT
  Age: 45 Year
  Sex: Male
  Weight: 50 kg

DRUGS (15)
  1. SOFOSBUVIR [Suspect]
     Active Substance: SOFOSBUVIR
     Indication: HEPATITIS C
     Dosage: 400 MG, QD
     Route: 048
     Dates: start: 20140929
  2. MIRCERA [Concomitant]
     Active Substance: PEGZEREPOETIN ALFA
     Dosage: UNK
     Dates: start: 20141007
  3. RIBAVIRIN. [Suspect]
     Active Substance: RIBAVIRIN
     Indication: HEPATITIS C
     Dosage: 800 MG, QD
     Route: 048
     Dates: start: 20140929
  4. VITAMIN B [Concomitant]
     Active Substance: VITAMIN B
  5. L-THYROXIN [Concomitant]
     Active Substance: LEVOTHYROXINE SODIUM
  6. RIFAMPICINE [Concomitant]
     Active Substance: RIFAMPIN
     Dosage: UNK
     Dates: start: 20141007
  7. SANDIMMUNE [Concomitant]
     Active Substance: CYCLOSPORINE
     Indication: IMMUNOSUPPRESSANT DRUG THERAPY
  8. BARACLUDE [Concomitant]
     Active Substance: ENTECAVIR
  9. ETHAMBUTOL [Concomitant]
     Active Substance: ETHAMBUTOL HYDROCHLORIDE
     Dosage: UNK
     Dates: start: 20141007
  10. PYRAZINAMID [Concomitant]
     Dosage: UNK
     Dates: start: 20141007
  11. PREDNISOLON                        /00016201/ [Concomitant]
     Active Substance: PREDNISOLONE
     Indication: IMMUNOSUPPRESSANT DRUG THERAPY
  12. PANTOZOL [Concomitant]
     Active Substance: PANTOPRAZOLE SODIUM
     Dosage: UNK
     Dates: start: 20141007
  13. ISOZID [Concomitant]
     Active Substance: ISONIAZID
     Dosage: UNK
     Dates: start: 20141007
  14. FALITHROM [Concomitant]
     Active Substance: PHENPROCOUMON
  15. INFLIXIMAB [Concomitant]
     Active Substance: INFLIXIMAB
     Indication: CROHN^S DISEASE
     Dosage: UNK
     Dates: end: 20141007

REACTIONS (1)
  - Pulmonary tuberculosis [Recovered/Resolved]

NARRATIVE: CASE EVENT DATE: 20141007
